FAERS Safety Report 4335860-6 (Version None)
Quarter: 2004Q2

REPORT INFORMATION
  Report Type: 
  Country: None (occurrence: None)
  Receive Date: 20040409
  Receipt Date: 20040402
  Transmission Date: 20050107
  Serious: Yes (Hospitalization)
  Sender: FDA-Public Use
  Company Number: PHFR2004GB01654

PATIENT
  Sex: Male

DRUGS (1)
  1. BACLOFEN [Suspect]
     Dosage: 10 MG, TID

REACTIONS (3)
  - ANAEMIA [None]
  - DUODENAL ULCER [None]
  - HAEMORRHAGE [None]
